FAERS Safety Report 8259770-7 (Version None)
Quarter: 2012Q2

REPORT INFORMATION
  Report Type: 
  Country: None (occurrence: None)
  Receive Date: 20120404
  Receipt Date: 20120328
  Transmission Date: 20120825
  Serious: Yes (Death)
  Sender: FDA-Public Use
  Company Number: US-TEVA-330401USA

PATIENT
  Sex: Female

DRUGS (2)
  1. FENTANYL [Suspect]
     Dosage: 58.3333 MICROGRAM;
  2. CITALOPRAM HYDROBROMIDE [Suspect]
     Dosage: 60 MILLIGRAM;

REACTIONS (1)
  - MULTIPLE DRUG OVERDOSE [None]
